FAERS Safety Report 9775043 (Version 4)
Quarter: 2014Q1

REPORT INFORMATION
  Report Type: Report from Study
  Country: US (occurrence: US)
  Receive Date: 20131220
  Receipt Date: 20140122
  Transmission Date: 20141002
  Serious: Yes (Other)
  Sender: FDA-Public Use
  Company Number: US-ROCHE-1304830

PATIENT
  Age: 88 Year
  Sex: Female
  Weight: 90.8 kg

DRUGS (5)
  1. ERIVEDGE [Suspect]
     Indication: BASAL CELL CARCINOMA
     Route: 048
     Dates: start: 20130722, end: 20131108
  2. ERIVEDGE [Suspect]
     Route: 048
     Dates: start: 20131120, end: 20140104
  3. ALLEGRA [Concomitant]
     Indication: PRURITUS
     Route: 048
  4. NAMENDA [Concomitant]
     Indication: DEMENTIA
     Route: 048
  5. PRAVASTATIN [Concomitant]
     Indication: HYPERCHOLESTEROLAEMIA
     Route: 048

REACTIONS (10)
  - Muscle spasms [Recovered/Resolved]
  - Cardiac disorder [Not Recovered/Not Resolved]
  - Alopecia [Not Recovered/Not Resolved]
  - Pruritus [Not Recovered/Not Resolved]
  - Pain in extremity [Not Recovered/Not Resolved]
  - Decreased appetite [Not Recovered/Not Resolved]
  - Dysgeusia [Not Recovered/Not Resolved]
  - Fatigue [Unknown]
  - Depression [Unknown]
  - Suicidal ideation [Unknown]
